FAERS Safety Report 14525928 (Version 1)
Quarter: 2018Q1

REPORT INFORMATION
  Report Type: Spontaneous
  Country: ES (occurrence: ES)
  Receive Date: 20180213
  Receipt Date: 20180213
  Transmission Date: 20180509
  Serious: Yes (Hospitalization)
  Sender: FDA-Public Use
  Company Number: ES-HORIZON-PRE-0051-2018

PATIENT
  Age: 85 Year
  Sex: Female

DRUGS (1)
  1. PREDNISONE. [Suspect]
     Active Substance: PREDNISONE
     Indication: BRONCHIAL HYPERREACTIVITY
     Dosage: 10 MG ONCE PER DAY
     Route: 048
     Dates: start: 20171020

REACTIONS (1)
  - Diabetic hyperglycaemic coma [Recovering/Resolving]

NARRATIVE: CASE EVENT DATE: 20171101
